FAERS Safety Report 6329749-0 (Version None)
Quarter: 2009Q3

REPORT INFORMATION
  Report Type: 
  Country: None (occurrence: None)
  Receive Date: 20090826
  Receipt Date: 20090818
  Transmission Date: 20100115
  Serious: Yes (Hospitalization)
  Sender: FDA-Public Use
  Company Number: NL-TEVA-206120ISR

PATIENT
  Sex: Male

DRUGS (2)
  1. FEXOFENADINE [Suspect]
     Dates: start: 20090721
  2. CARBASALATE CALCIUM [Concomitant]
     Dates: start: 20090509

REACTIONS (1)
  - PALPITATIONS [None]
